FAERS Safety Report 20218515 (Version 1)
Quarter: 2021Q4

REPORT INFORMATION
  Report Type: Spontaneous
  Country: US (occurrence: US)
  Receive Date: 20211222
  Receipt Date: 20211222
  Transmission Date: 20220303
  Serious: No
  Sender: FDA-Public Use
  Company Number: US-BioHaven Pharmaceuticals-2021BHV000639

PATIENT
  Age: 51 Year
  Sex: Female

DRUGS (1)
  1. NURTEC ODT [Suspect]
     Active Substance: RIMEGEPANT SULFATE
     Indication: Product used for unknown indication
     Dosage: PATIENT TOOK HER FIRST DOSE OF NURTEC ON 19-SEP-2021 AT 12.30 PM AND SECOND DOSE AROUND 1.00AM.
     Route: 065
     Dates: start: 20210919

REACTIONS (1)
  - Drug ineffective [Unknown]
